FAERS Safety Report 16810543 (Version 1)
Quarter: 2019Q3

REPORT INFORMATION
  Report Type: Spontaneous
  Country: CN (occurrence: CN)
  Receive Date: 20190916
  Receipt Date: 20190916
  Transmission Date: 20191005
  Serious: Yes (Hospitalization)
  Sender: FDA-Public Use
  Company Number: CN-NOVOPROD-683998

PATIENT
  Age: 64 Year
  Sex: Female
  Weight: 52 kg

DRUGS (2)
  1. NOVOLIN [Suspect]
     Active Substance: INSULIN HUMAN
     Indication: TYPE 2 DIABETES MELLITUS
     Dosage: 45 IU, QD (23 U IN THE MORNING AND 22 U IN THE EVENING)
     Route: 058
     Dates: start: 20190729, end: 20190730
  2. NOVOLIN [Suspect]
     Active Substance: INSULIN HUMAN
     Dosage: 52 IU, QD (22 U IN THE MORNING, 10 U AT NOON AND 20 U IN THE EVENING)
     Route: 058
     Dates: start: 20190730, end: 20190801

REACTIONS (4)
  - Pain in extremity [Unknown]
  - Hypoaesthesia [Unknown]
  - Pruritus generalised [Recovering/Resolving]
  - Diabetes mellitus inadequate control [Unknown]

NARRATIVE: CASE EVENT DATE: 20190801
